FAERS Safety Report 5622910-X (Version None)
Quarter: 2008Q1

REPORT INFORMATION
  Report Type: 
  Country: None (occurrence: None)
  Receive Date: 20080206
  Receipt Date: 20080124
  Transmission Date: 20080703
  Serious: Yes (Life-Threatening, Hospitalization)
  Sender: FDA-Public Use
  Company Number: THYR-1000006

PATIENT
  Age: 40 Year
  Sex: Female
  Weight: 76 kg

DRUGS (6)
  1. THYROGEN [Suspect]
     Indication: DIAGNOSTIC PROCEDURE
     Dosage: 1/2 VIAL PER DAY FOR 2 DAYS, INTRAMUSCULAR
     Route: 030
     Dates: start: 20080122, end: 20080123
  2. CALCIUM CARBONATE (CALCIUM CARBONATE) TABLET [Concomitant]
  3. VITAMIN B12 (HYDROXOCOBALAMIN) UNKNOWN [Concomitant]
  4. CALCITRIOL (CALCITRIOL) UNKNOWN [Concomitant]
  5. ERYTHROPOIETIN (ERYTHROPOIETIN) UNKNOWN [Concomitant]
  6. IRON (IRON) UNKNOWN [Concomitant]

REACTIONS (7)
  - BLOOD CREATINE INCREASED [None]
  - BLOOD SODIUM DECREASED [None]
  - BLOOD THYROID STIMULATING HORMONE ABNORMAL [None]
  - BLOOD UREA ABNORMAL [None]
  - HYPERKALAEMIA [None]
  - NAUSEA [None]
  - VOMITING [None]
